FAERS Safety Report 9889718 (Version 8)
Quarter: 2014Q2

REPORT INFORMATION
  Report Type: Spontaneous
  Country: JP (occurrence: JP)
  Receive Date: 20140211
  Receipt Date: 20140527
  Transmission Date: 20141212
  Serious: Yes (Life-Threatening, Hospitalization, Other)
  Sender: FDA-Public Use
  Company Number: JP-PFIZER INC-2014037689

PATIENT
  Age: 68 Year
  Sex: Male
  Weight: 51 kg

DRUGS (7)
  1. CELECOX [Suspect]
     Indication: PAIN
     Dosage: 200 MG, 2X/DAY
     Route: 048
     Dates: start: 20140119, end: 20140127
  2. CELECOX [Suspect]
     Indication: PROCEDURAL PAIN
  3. FLUMARIN [Concomitant]
     Indication: HEPATIC INFARCTION
     Dosage: 1 G, 2X/DAY
     Route: 041
     Dates: start: 20140120, end: 20140121
  4. MEROPENEM [Concomitant]
     Indication: HEPATIC INFARCTION
     Dosage: 0.5 G, 4X/DAY
     Route: 041
     Dates: start: 20140121, end: 20140127
  5. MEROPENEM [Concomitant]
     Dosage: UNK
     Dates: start: 20140130
  6. FIRSTCIN [Concomitant]
     Dosage: 1 G, DAILY
     Route: 041
     Dates: start: 20140127
  7. CEFOTIAM HYDROCHLORIDE [Concomitant]
     Indication: PROPHYLAXIS
     Dosage: 1 G, 2X/DAY
     Route: 041
     Dates: start: 20140114, end: 20140117

REACTIONS (8)
  - Jaundice [Recovering/Resolving]
  - Cerebral infarction [Unknown]
  - Drug-induced liver injury [Recovering/Resolving]
  - Hepatic infarction [Not Recovered/Not Resolved]
  - Sepsis [Recovering/Resolving]
  - Bacteraemia [Recovering/Resolving]
  - Anaemia [Recovering/Resolving]
  - Pyrexia [Recovered/Resolved]
